FAERS Safety Report 4794328-3 (Version None)
Quarter: 2005Q4

REPORT INFORMATION
  Report Type: 
  Country: None (occurrence: None)
  Receive Date: 20051007
  Receipt Date: 20051007
  Transmission Date: 20060501
  Serious: Yes (Disabling)
  Sender: FDA-Public Use
  Company Number: None

PATIENT
  Age: 80 Year
  Sex: Male

DRUGS (2)
  1. WARFARIN [Suspect]
     Indication: ATRIAL FIBRILLATION
     Dates: start: 20030101, end: 20050614
  2. WARFARIN [Suspect]
     Indication: CEREBROVASCULAR ACCIDENT
     Dates: start: 20030101, end: 20050614

REACTIONS (3)
  - FALL [None]
  - HEMIPARESIS [None]
  - SUBDURAL HAEMATOMA [None]
